FAERS Safety Report 7914538-3 (Version None)
Quarter: 2011Q4

REPORT INFORMATION
  Report Type: 
  Country: None (occurrence: None)
  Receive Date: 20111115
  Receipt Date: 20111031
  Transmission Date: 20120403
  Serious: Yes (Other)
  Sender: FDA-Public Use
  Company Number: PHHY2011BR96887

PATIENT
  Sex: Male

DRUGS (2)
  1. RITALIN [Suspect]
     Indication: ATTENTION DEFICIT/HYPERACTIVITY DISORDER
     Dosage: 2 DF, QD
     Route: 048
  2. RITALIN [Suspect]
     Dosage: 4-5 DF, QD
     Route: 048

REACTIONS (6)
  - INSOMNIA [None]
  - INCORRECT DOSE ADMINISTERED [None]
  - ANGER [None]
  - WEIGHT DECREASED [None]
  - DEPENDENCE [None]
  - HUNGER [None]
